FAERS Safety Report 22211260 (Version 2)
Quarter: 2023Q2

REPORT INFORMATION
  Report Type: Report from Study
  Country: US (occurrence: US)
  Receive Date: 20230414
  Receipt Date: 20230417
  Transmission Date: 20230722
  Serious: Yes (Other)
  Sender: FDA-Public Use
  Company Number: US-ABBVIE-4719065

PATIENT
  Age: 46 Year
  Sex: Female

DRUGS (2)
  1. HUMIRA [Suspect]
     Active Substance: ADALIMUMAB
     Indication: Hidradenitis
     Dosage: CITRATE FREE? FORM STRENGTH: 80MG?STOP DATE 2023
     Route: 058
     Dates: start: 20230307
  2. HUMIRA [Suspect]
     Active Substance: ADALIMUMAB
     Dosage: START DATE 2023
     Route: 058

REACTIONS (8)
  - Loss of consciousness [Unknown]
  - Respiratory tract infection [Unknown]
  - Pharyngitis [Unknown]
  - Cystitis [Recovering/Resolving]
  - Ear infection [Unknown]
  - Urinary tract infection [Unknown]
  - Hypertension [Unknown]
  - Sinusitis [Recovering/Resolving]

NARRATIVE: CASE EVENT DATE: 20230325
